FAERS Safety Report 5878319-7 (Version None)
Quarter: 2008Q3

REPORT INFORMATION
  Report Type: 
  Country: None (occurrence: None)
  Receive Date: 20080911
  Receipt Date: 20080830
  Transmission Date: 20090109
  Serious: Yes (Other)
  Sender: FDA-Public Use
  Company Number: JP-PFIZER INC-2008073156

PATIENT

DRUGS (2)
  1. CHANTIX [Suspect]
     Route: 048
  2. OTHER NERVOUS SYSTEM DRUGS [Concomitant]
     Indication: MENTAL DISORDER

REACTIONS (1)
  - MANIA [None]
